FAERS Safety Report 13004160 (Version 3)
Quarter: 2016Q4

REPORT INFORMATION
  Report Type: Spontaneous
  Country: US (occurrence: US)
  Receive Date: 20161206
  Receipt Date: 20161228
  Transmission Date: 20170207
  Serious: Yes (Other)
  Sender: FDA-Public Use
  Company Number: US-JAZZ-2016-US-021685

PATIENT
  Sex: Male

DRUGS (10)
  1. RITALIN [Concomitant]
     Active Substance: METHYLPHENIDATE HYDROCHLORIDE
  2. XYREM [Suspect]
     Active Substance: SODIUM OXYBATE
     Indication: NARCOLEPSY
     Dosage: 2.25 G, BID
     Route: 048
     Dates: start: 200612, end: 2006
  3. METHYLPHENIDATE. [Concomitant]
     Active Substance: METHYLPHENIDATE
  4. NASONEX [Concomitant]
     Active Substance: MOMETASONE FUROATE
  5. PROVIGIL [Concomitant]
     Active Substance: MODAFINIL
  6. RHINOCORT AQUA [Concomitant]
     Active Substance: BUDESONIDE
  7. XYREM [Suspect]
     Active Substance: SODIUM OXYBATE
     Indication: CATAPLEXY
     Dosage: 3 G, BID
     Route: 048
     Dates: start: 200701
  8. NORVASC [Concomitant]
     Active Substance: AMLODIPINE BESYLATE
  9. PREVACID [Concomitant]
     Active Substance: LANSOPRAZOLE
  10. NUVIGIL [Concomitant]
     Active Substance: ARMODAFINIL

REACTIONS (7)
  - Bronchitis [Recovered/Resolved]
  - Weight decreased [Unknown]
  - Influenza [Recovered/Resolved]
  - Nephrolithiasis [Unknown]
  - Ear infection [Unknown]
  - Hypertension [Recovered/Resolved]
  - Hypersensitivity [Unknown]

NARRATIVE: CASE EVENT DATE: 2016
